FAERS Safety Report 15629039 (Version 1)
Quarter: 2018Q4

REPORT INFORMATION
  Report Type: Spontaneous
  Country: GB (occurrence: GB)
  Receive Date: 20181116
  Receipt Date: 20181116
  Transmission Date: 20190205
  Serious: Yes (Hospitalization)
  Sender: FDA-Public Use
  Company Number: GB-TEVA-2018-GB-975818

PATIENT
  Age: 86 Year
  Sex: Male
  Weight: 79 kg

DRUGS (5)
  1. TAMSULOSIN HYDROCHLORIDE. [Concomitant]
     Active Substance: TAMSULOSIN HYDROCHLORIDE
     Route: 065
  2. FOLIC ACID. [Concomitant]
     Active Substance: FOLIC ACID
     Route: 065
  3. DIETHYLSTILBESTROL [Concomitant]
     Active Substance: DIETHYLSTILBESTROL
     Route: 065
  4. ACETYLSALICYLIC ACID [Concomitant]
     Active Substance: ASPIRIN
     Route: 065
  5. OMEPRAZOLE SODIUM [Suspect]
     Active Substance: OMEPRAZOLE SODIUM
     Indication: OESOPHAGEAL STENOSIS
     Dosage: 40 MILLIGRAM DAILY; IN THE MORNING
     Route: 048
     Dates: end: 20181018

REACTIONS (2)
  - Acute kidney injury [Unknown]
  - Tubulointerstitial nephritis [Not Recovered/Not Resolved]

NARRATIVE: CASE EVENT DATE: 20181017
